FAERS Safety Report 10090294 (Version 1)
Quarter: 2014Q2

REPORT INFORMATION
  Report Type: Spontaneous
  Country: FR (occurrence: FR)
  Receive Date: 20140421
  Receipt Date: 20140421
  Transmission Date: 20141212
  Serious: Yes (Death, Hospitalization)
  Sender: FDA-Public Use
  Company Number: FR-SA-2014SA044064

PATIENT
  Age: 90 Year
  Sex: Female

DRUGS (2)
  1. COAPROVEL [Suspect]
     Indication: PRODUCT USED FOR UNKNOWN INDICATION
     Route: 065
  2. IBUPROFENE [Suspect]
     Indication: PRODUCT USED FOR UNKNOWN INDICATION
     Route: 065

REACTIONS (9)
  - Hypothermia [Fatal]
  - Coma [Fatal]
  - Shock [Fatal]
  - Livedo reticularis [Fatal]
  - Peripheral coldness [Fatal]
  - Hypotension [Fatal]
  - Bradycardia [Fatal]
  - Pulseless electrical activity [Fatal]
  - Cardiac arrest [Fatal]
